FAERS Safety Report 4960907-3 (Version None)
Quarter: 2006Q2

REPORT INFORMATION
  Report Type: 
  Country: None (occurrence: None)
  Receive Date: 20060403
  Receipt Date: 20060116
  Transmission Date: 20061013
  Serious: Yes (Hospitalization)
  Sender: FDA-Public Use
  Company Number: 2006AP00266

PATIENT
  Age: 23488 Day
  Sex: Female

DRUGS (3)
  1. ANAPEINE [Suspect]
     Indication: EPIDURAL ANAESTHESIA
     Dosage: (0.25 % DILUTION 13 ML) ADMINISTERED TO L3-4
     Route: 008
     Dates: start: 20051214, end: 20051214
  2. MORPHINE [Concomitant]
     Route: 065
     Dates: start: 20051214, end: 20051214
  3. LIDOCAINE [Concomitant]
     Indication: EPIDURAL ANAESTHESIA
     Dosage: 10 CC
     Route: 008
     Dates: start: 20051214

REACTIONS (2)
  - ANORECTAL DISORDER [None]
  - URINARY RETENTION [None]
